FAERS Safety Report 4874526-0 (Version None)
Quarter: 2006Q1

REPORT INFORMATION
  Report Type: 
  Country: None (occurrence: None)
  Receive Date: 20060103
  Receipt Date: 20060103
  Transmission Date: 20060701
  Serious: Yes (Life-Threatening, Hospitalization)
  Sender: FDA-Public Use
  Company Number: None

PATIENT
  Age: 16 Year
  Sex: Male
  Weight: 48 kg

DRUGS (1)
  1. PROPOFOL [Suspect]
     Indication: CONVULSION
     Dosage: TITRATED UP TO MAX 200 MCG/KG/MIN IV
     Route: 042
     Dates: start: 20050621, end: 20050622

REACTIONS (1)
  - CHROMATURIA [None]
